FAERS Safety Report 24121288 (Version 1)
Quarter: 2024Q3

REPORT INFORMATION
  Report Type: Spontaneous
  Country: US (occurrence: US)
  Receive Date: 20240722
  Receipt Date: 20240722
  Transmission Date: 20241017
  Serious: No
  Sender: BRISTOL MYERS SQUIBB
  Company Number: US-BRISTOL-MYERS SQUIBB COMPANY-2024-114879

PATIENT
  Age: 62 Year
  Sex: Male
  Weight: 102.51 kg

DRUGS (1)
  1. POMALYST [Suspect]
     Active Substance: POMALIDOMIDE
     Indication: Plasmacytoma
     Dosage: FREQUENCY: ONCE DAILY BEFORE BREAKFAST FOR 21 DAYS ON THEN 7 DAYS OFF
     Route: 048

REACTIONS (3)
  - Fatigue [Recovering/Resolving]
  - Stomatitis [Recovering/Resolving]
  - Off label use [Unknown]
